FAERS Safety Report 5258000-8 (Version None)
Quarter: 2007Q1

REPORT INFORMATION
  Report Type: 
  Country: None (occurrence: None)
  Receive Date: 20070307
  Receipt Date: 20061201
  Transmission Date: 20070707
  Serious: No
  Sender: FDA-Public Use
  Company Number: US-GLAXOSMITHKLINE-A0630114A

PATIENT
  Sex: Female

DRUGS (2)
  1. REQUIP [Suspect]
     Indication: DRUG USE FOR UNKNOWN INDICATION
     Dosage: .25MG THREE TIMES PER DAY
     Route: 048
  2. PERMAX [Concomitant]

REACTIONS (2)
  - RESTLESS LEGS SYNDROME [None]
  - THERAPEUTIC RESPONSE DECREASED [None]
